FAERS Safety Report 20723300 (Version 1)
Quarter: 2022Q2

REPORT INFORMATION
  Report Type: Other
  Country: CA (occurrence: CA)
  Receive Date: 20220419
  Receipt Date: 20220419
  Transmission Date: 20220721
  Serious: Yes (Other)
  Sender: FDA-Public Use
  Company Number: CA-APOTEX-2022AP006150

PATIENT
  Age: 70 Year
  Sex: Female
  Weight: 48 kg

DRUGS (17)
  1. GABAPENTIN [Suspect]
     Active Substance: GABAPENTIN
     Indication: Product used for unknown indication
     Dosage: UNK
     Route: 065
  2. ESBRIET [Suspect]
     Active Substance: PIRFENIDONE
     Indication: Idiopathic pulmonary fibrosis
     Dosage: 534 MILLIGRAM, TID, THERAPY DURATION -151 UNSPECIFIED UNIT
     Route: 048
  3. ESBRIET [Suspect]
     Active Substance: PIRFENIDONE
     Dosage: 801 MILLIGRAM, TID
     Route: 048
  4. ESBRIET [Suspect]
     Active Substance: PIRFENIDONE
     Dosage: 534 MILLIGRAM
     Route: 048
  5. ESBRIET [Suspect]
     Active Substance: PIRFENIDONE
     Dosage: 1869 MILLIGRAM
     Route: 048
  6. ESBRIET [Suspect]
     Active Substance: PIRFENIDONE
     Dosage: 801 MILLIGRAM, TID
     Route: 048
  7. ESBRIET [Suspect]
     Active Substance: PIRFENIDONE
     Dosage: 801 MILLIGRAM
     Route: 048
  8. ESBRIET [Suspect]
     Active Substance: PIRFENIDONE
     Dosage: 534 MILLIGRAM, TID
     Route: 048
  9. ESBRIET [Suspect]
     Active Substance: PIRFENIDONE
     Dosage: 267 MILLIGRAM
     Route: 048
  10. ESBRIET [Suspect]
     Active Substance: PIRFENIDONE
     Dosage: 2136 MILLIGRAM, QD
     Route: 048
  11. ACETAMINOPHEN [Concomitant]
     Active Substance: ACETAMINOPHEN
     Indication: Product used for unknown indication
     Dosage: UNK
     Route: 065
  12. CITALOPRAM [Concomitant]
     Active Substance: CITALOPRAM HYDROBROMIDE
     Indication: Product used for unknown indication
     Dosage: UNK
     Route: 065
  13. ESTROGEL [Concomitant]
     Active Substance: ESTRADIOL
     Indication: Product used for unknown indication
     Dosage: UNK
     Route: 065
  14. SANDOSTATIN [Concomitant]
     Active Substance: OCTREOTIDE ACETATE
     Indication: Product used for unknown indication
     Dosage: UNK
     Route: 065
  15. SENOKOT-S [Concomitant]
     Active Substance: DOCUSATE SODIUM\SENNOSIDES
     Indication: Product used for unknown indication
     Dosage: UNK
     Route: 065
  16. SYNTHROID [Concomitant]
     Active Substance: LEVOTHYROXINE SODIUM
     Indication: Product used for unknown indication
     Dosage: UNK
     Route: 065
  17. ZOPICLONE [Concomitant]
     Active Substance: ZOPICLONE
     Indication: Product used for unknown indication
     Dosage: UNK
     Route: 065

REACTIONS (17)
  - Abdominal pain upper [Not Recovered/Not Resolved]
  - Bronchitis [Not Recovered/Not Resolved]
  - Dyspnoea exertional [Not Recovered/Not Resolved]
  - Gastrooesophageal reflux disease [Not Recovered/Not Resolved]
  - Pneumonia [Not Recovered/Not Resolved]
  - Rash [Not Recovered/Not Resolved]
  - Rash macular [Not Recovered/Not Resolved]
  - Respiration abnormal [Not Recovered/Not Resolved]
  - Retching [Not Recovered/Not Resolved]
  - Stress [Not Recovered/Not Resolved]
  - Weight decreased [Not Recovered/Not Resolved]
  - Diarrhoea [Not Recovered/Not Resolved]
  - Cough [Not Recovered/Not Resolved]
  - Nausea [Not Recovered/Not Resolved]
  - Dyspnoea [Not Recovered/Not Resolved]
  - Asthenia [Not Recovered/Not Resolved]
  - Fatigue [Not Recovered/Not Resolved]
